FAERS Safety Report 7230780-1 (Version None)
Quarter: 2011Q1

REPORT INFORMATION
  Report Type: 
  Country: None (occurrence: None)
  Receive Date: 20110118
  Receipt Date: 20110113
  Transmission Date: 20110831
  Serious: Yes (Hospitalization, Other)
  Sender: FDA-Public Use
  Company Number: US-ASTRAZENECA-2007UW10984

PATIENT
  Age: 607 Month
  Sex: Female
  Weight: 91.6 kg

DRUGS (42)
  1. SEROQUEL [Suspect]
     Indication: DEPRESSION
     Dosage: 100-200 MG
     Route: 048
     Dates: start: 20030731, end: 20050304
  2. TRAZODONE HCL [Concomitant]
     Dates: start: 20030829
  3. FLUNISOLIDE [Concomitant]
  4. FORMOTEROL FUMARATE [Concomitant]
  5. CLARITIN [Concomitant]
     Dates: start: 20050331
  6. TRAZODONE HYDROCHLORIDE [Concomitant]
     Indication: INSOMNIA
     Dosage: 50-100 MG
     Route: 048
     Dates: start: 20030829
  7. FLUTICASONE/SALMET [Concomitant]
     Dosage: INHALE 1 INHALATION EVERY TWELVE HOURS
     Route: 055
     Dates: start: 20050310
  8. EFFEXOR [Concomitant]
     Dates: start: 20050331
  9. ALBUTEROL [Concomitant]
     Dosage: INHALE ONE PUFF EVERY 6 HOURS WHEN NEEDED
     Route: 055
     Dates: start: 20050310
  10. VERAPAMIL [Concomitant]
     Indication: ESSENTIAL HYPERTENSION
     Dates: start: 20080929
  11. ZYPREXA [Concomitant]
     Dates: start: 19960101
  12. DIVALPROEX SODIUM [Concomitant]
     Dates: start: 20030829, end: 20060126
  13. CLONIDINE HCL [Concomitant]
  14. DEXAMETH/DIPHENHYD/LIDOCAINE/MYLANTA [Concomitant]
  15. TRAMADOL HCL [Concomitant]
  16. SPIRIVA [Concomitant]
     Dosage: INHALE AS DIRECTED EVERY DAY
     Route: 055
     Dates: start: 20050310
  17. SEROQUEL [Suspect]
     Dosage: 100 MG AT NIGHT, 200 MG AT NIGHT
     Route: 048
     Dates: start: 20030731
  18. WELLBUTRIN SR [Concomitant]
  19. ACETIC ACID [Concomitant]
  20. FLURAZEPAM [Concomitant]
  21. DEPAKOTE [Concomitant]
     Route: 048
     Dates: start: 20030829
  22. AZITHROMYCIN [Concomitant]
  23. IPRATROPIUM BROMIDE [Concomitant]
  24. TEMAZEPAM [Concomitant]
     Dates: start: 20060131, end: 20060302
  25. CLONAZEPAM [Concomitant]
  26. LITHIUM CARBONATE [Concomitant]
  27. ALBUTEROL SULFATE AND IPRATROPIUM BROMIDE [Concomitant]
     Dosage: INHALE 2 PUFFS FOUR TIMES DAILY
     Route: 055
     Dates: start: 20030926
  28. FLUCONAZOLE [Concomitant]
  29. MONTELUKAST NA [Concomitant]
  30. PREDNISONE [Concomitant]
  31. REMERON [Concomitant]
     Dates: start: 20050304
  32. PAROXETINE [Concomitant]
     Dates: start: 20041129, end: 20060222
  33. AMITRIPTYLINE [Concomitant]
  34. COZAAR [Concomitant]
     Indication: ESSENTIAL HYPERTENSION
     Dosage: 50 MG
     Dates: start: 20080929
  35. AMITRIPTYLINE HCL [Concomitant]
  36. CROMOLYN SODIUM [Concomitant]
  37. DILTIAZEM HCL [Concomitant]
     Dates: start: 20050411
  38. OMEPRAZOLE [Concomitant]
  39. FLUOCINONIDE [Concomitant]
     Dosage: 0.05% APPLY OINTMENT TO AFFECTED AREA TWICE A DAY
     Route: 061
     Dates: start: 20050318
  40. RISPERDAL [Concomitant]
  41. CODEINE/GUAFENESIN [Concomitant]
  42. IPRATROPIUM BROMIDE [Concomitant]
     Dosage: INHALE 1 AMPULE (2.5 ML) AS DIRECTED EVERY 6 HOURS
     Route: 055
     Dates: start: 20050201

REACTIONS (19)
  - CHRONIC OBSTRUCTIVE PULMONARY DISEASE [None]
  - PNEUMONIA [None]
  - OBESITY [None]
  - DIABETES MELLITUS [None]
  - ABDOMINAL PAIN LOWER [None]
  - FLUSHING [None]
  - TACHYCARDIA PAROXYSMAL [None]
  - STRESS URINARY INCONTINENCE [None]
  - INSOMNIA [None]
  - DIARRHOEA [None]
  - DIABETIC NEUROPATHY [None]
  - NEUROPATHY PERIPHERAL [None]
  - CONSTIPATION [None]
  - NEURALGIA [None]
  - CORONARY ARTERY DISEASE [None]
  - METABOLIC SYNDROME [None]
  - ABDOMINAL PAIN [None]
  - TYPE 2 DIABETES MELLITUS [None]
  - DIABETIC NEPHROPATHY [None]
